FAERS Safety Report 11100492 (Version 2)
Quarter: 2015Q2

REPORT INFORMATION
  Report Type: Spontaneous
  Country: JP (occurrence: JP)
  Receive Date: 20150508
  Receipt Date: 20150612
  Transmission Date: 20150821
  Serious: Yes (Death, Life-Threatening)
  Sender: FDA-Public Use
  Company Number: JP-GE HEALTHCARE MEDICAL DIAGNOSTICS-MSTR-PR-1505S-0001

PATIENT
  Age: 76 Year
  Sex: Male
  Weight: 72 kg

DRUGS (9)
  1. METASTRON [Suspect]
     Active Substance: STRONTIUM CHLORIDE SR-89
     Indication: THERAPEUTIC PROCEDURE
  2. DABIGATRAN ETEXILATE METHANESULFONATE [Concomitant]
     Active Substance: DABIGATRAN
  3. ESOMEPRAZOLE MAGNESIUM HYDRATE [Concomitant]
  4. VERAPAMIL HYDROCHLORIDE. [Concomitant]
     Active Substance: VERAPAMIL HYDROCHLORIDE
  5. PREDNISOLONE. [Concomitant]
     Active Substance: PREDNISOLONE
  6. DICLOFENAC SODIUM. [Concomitant]
     Active Substance: DICLOFENAC SODIUM
  7. MAGNESIUM OXIDE. [Concomitant]
     Active Substance: MAGNESIUM OXIDE
  8. OXYCODONE [Concomitant]
     Active Substance: OXYCODONE
  9. METASTRON [Suspect]
     Active Substance: STRONTIUM CHLORIDE SR-89
     Indication: METASTATIC PAIN
     Route: 042
     Dates: start: 20150330, end: 20150403

REACTIONS (3)
  - Bone pain [Not Recovered/Not Resolved]
  - Dyspnoea [Not Recovered/Not Resolved]
  - Interstitial lung disease [Fatal]

NARRATIVE: CASE EVENT DATE: 20150331
